FAERS Safety Report 6230667-7 (Version None)
Quarter: 2009Q2

REPORT INFORMATION
  Report Type: 
  Country: None (occurrence: None)
  Receive Date: 20090611
  Receipt Date: 20090602
  Transmission Date: 20091009
  Serious: Yes (Hospitalization)
  Sender: FDA-Public Use
  Company Number: 1000006682

PATIENT
  Age: 70 Year
  Sex: Female

DRUGS (10)
  1. CITALOPRAM HYDROBROMIDE [Suspect]
     Indication: DEPRESSION
     Dosage: 30 MG 930 MG, 1 IN 1 D), ORAL
     Route: 048
  2. LEPONEX [Suspect]
     Indication: HALLUCINATION
     Dosage: 12.5 MG 912.5 MG, 1 IN 1 D), ORAL
     Route: 048
     Dates: start: 20090510, end: 20090518
  3. LEPONEX [Suspect]
     Indication: HALLUCINATION
     Dosage: 25 MG (25 MG, 1 IN 1 D), ORAL
     Route: 048
     Dates: start: 20090519, end: 20090519
  4. ISOPTIN [Suspect]
     Indication: HYPERTENSION
     Dosage: 3 DOSAGE FROMS (3 DOSAGE FORMS, 1 IN 1 D), ORAL
     Route: 048
  5. EXELON [Suspect]
     Indication: DEMENTIA WITH LEWY BODIES
     Dosage: 1 DOSAGE FORMS (1  DOSAGE FORMS, 1 IN 1 ), TRANSDERMAL
     Route: 062
  6. SERESTA (TABLETS) [Suspect]
     Indication: ANXIETY
     Dosage: 20 MG (20 MG, 1 IN 1 D), ORAL
     Route: 048
  7. MODOPAR (CAPSULES) [Suspect]
     Indication: PARKINSON'S DISEASE
     Dosage: (50 MG/12.5 MG) (3 DOSAGE FORMS, 1 IN 1 D), ORAL
     Route: 048
  8. KARDEGIC [Concomitant]
  9. ELISOR [Concomitant]
  10. FLUDROCORTISONE [Concomitant]

REACTIONS (3)
  - HYPOALBUMINAEMIA [None]
  - HYPOTENSION [None]
  - SOMNOLENCE [None]
